FAERS Safety Report 6455080-9 (Version None)
Quarter: 2009Q4

REPORT INFORMATION
  Report Type: 
  Country: None (occurrence: None)
  Receive Date: 20091118
  Receipt Date: 20091103
  Transmission Date: 20100525
  Serious: Yes (Hospitalization)
  Sender: FDA-Public Use
  Company Number: B0604354A

PATIENT
  Sex: 0

DRUGS (5)
  1. AMOXICILLIN AND CLAVULANATE POTASSIUM [Suspect]
     Indication: FEBRILE NEUTROPENIA
     Dosage: 12.5 MG/KG / THREE TIMES PER DAY / ORAL
     Route: 048
  2. OFLOXACIN [Suspect]
     Indication: FEBRILE NEUTROPENIA
     Dosage: 7.5 MG/KG / TWICE PER DAY / ORAL
     Route: 048
  3. VINCRISTINE [Concomitant]
  4. DACTINOMYCIN [Concomitant]
  5. CYCLOPHOSPHAMIDE [Concomitant]

REACTIONS (3)
  - DIARRHOEA [None]
  - PSEUDOMONAL BACTERAEMIA [None]
  - TREATMENT FAILURE [None]
